FAERS Safety Report 17292349 (Version 1)
Quarter: 2020Q1

REPORT INFORMATION
  Report Type: Spontaneous
  Country: GB (occurrence: GB)
  Receive Date: 20200121
  Receipt Date: 20200121
  Transmission Date: 20200409
  Serious: Yes (Disabling, Other)
  Sender: FDA-Public Use
  Company Number: GB-BAYER-2019-228817

PATIENT
  Age: 28 Year
  Sex: Female
  Weight: 62 kg

DRUGS (1)
  1. JAYDESS [Suspect]
     Active Substance: LEVONORGESTREL
     Indication: ENDOMETRIOSIS
     Dosage: 14 MCG/24HR, CONT
     Route: 015
     Dates: start: 20180828, end: 20190615

REACTIONS (1)
  - Uterine spasm [Recovered/Resolved]

NARRATIVE: CASE EVENT DATE: 20180828
